FAERS Safety Report 17798948 (Version 1)
Quarter: 2020Q2

REPORT INFORMATION
  Report Type: Spontaneous
  Country: AR (occurrence: AR)
  Receive Date: 20200518
  Receipt Date: 20200518
  Transmission Date: 20200714
  Serious: Yes (Other)
  Sender: FDA-Public Use
  Company Number: AR-PFIZER INC-2020195331

PATIENT
  Age: 66 Year
  Sex: Female

DRUGS (2)
  1. FULVESTRANT. [Concomitant]
     Active Substance: FULVESTRANT
     Dosage: UNK
  2. IBRANCE [Suspect]
     Active Substance: PALBOCICLIB
     Indication: BREAST CANCER METASTATIC
     Dosage: 75 MG, CYCLIC (DAILY, 3X1 SCHEME)
     Dates: start: 20170427

REACTIONS (6)
  - Malaise [Unknown]
  - Bone neoplasm [Unknown]
  - Fatigue [Unknown]
  - Red blood cell abnormality [Unknown]
  - White blood cell count decreased [Unknown]
  - Second primary malignancy [Unknown]

NARRATIVE: CASE EVENT DATE: 202001
